FAERS Safety Report 5855617-4 (Version None)
Quarter: 2008Q3

REPORT INFORMATION
  Report Type: 
  Country: None (occurrence: None)
  Receive Date: 20080821
  Receipt Date: 20080808
  Transmission Date: 20090109
  Serious: Yes (Hospitalization)
  Sender: FDA-Public Use
  Company Number: 236817J08USA

PATIENT
  Age: 59 Year
  Sex: Female

DRUGS (10)
  1. REBIF [Suspect]
     Indication: MULTIPLE SCLEROSIS
     Dosage: 44 MCG, 3 IN 1 WEEKS, SUBCUTANEOUS
     Route: 058
     Dates: start: 20030626, end: 20071101
  2. REBIF [Suspect]
     Indication: MULTIPLE SCLEROSIS
     Dosage: 44 MCG, 3 IN 1 WEEKS, SUBCUTANEOUS
     Route: 058
     Dates: start: 20071101, end: 20080201
  3. REBIF [Suspect]
     Indication: MULTIPLE SCLEROSIS
     Dosage: 44 MCG, 3 IN 1 WEEKS, SUBCUTANEOUS
     Route: 058
     Dates: start: 20080201
  4. XANAX [Concomitant]
  5. LOPID [Concomitant]
  6. FOSAMAX [Concomitant]
  7. OSCAL (CALCIUM CARBONATE) [Concomitant]
  8. ZOLOFT [Concomitant]
  9. NAPROSYN (MAPROXEN) [Concomitant]
  10. CYTOTEC [Concomitant]

REACTIONS (7)
  - CHOLELITHIASIS [None]
  - CONDITION AGGRAVATED [None]
  - FATIGUE [None]
  - GASTRIC ULCER [None]
  - HAEMOGLOBIN DECREASED [None]
  - LIVER ABSCESS [None]
  - MULTIPLE SCLEROSIS [None]
